FAERS Safety Report 20681897 (Version 1)
Quarter: 2022Q2

REPORT INFORMATION
  Report Type: Spontaneous
  Country: PT (occurrence: PT)
  Receive Date: 20220407
  Receipt Date: 20220407
  Transmission Date: 20220721
  Serious: Yes (Other)
  Sender: FDA-Public Use
  Company Number: PT-INFARMED-B202203-841

PATIENT
  Age: 34 Year
  Sex: Female

DRUGS (1)
  1. TRAMADOL [Suspect]
     Active Substance: TRAMADOL
     Indication: Surgery
     Dosage: UNK
     Route: 042

REACTIONS (2)
  - Pruritus [Recovered/Resolved]
  - Injection site erythema [Recovered/Resolved]
